FAERS Safety Report 7028393-X (Version None)
Quarter: 2010Q4

REPORT INFORMATION
  Report Type: 
  Country: None (occurrence: None)
  Receive Date: 20101005
  Receipt Date: 20100927
  Transmission Date: 20110411
  Serious: Yes (Other)
  Sender: FDA-Public Use
  Company Number: VE-PFIZER INC-2010123124

PATIENT
  Sex: Male

DRUGS (2)
  1. CHAMPIX [Suspect]
     Indication: SMOKING CESSATION THERAPY
     Dosage: 0.5 MG, 2X/DAY
     Route: 048
     Dates: start: 20100901, end: 20100901
  2. CORASPIN [Concomitant]
     Dosage: UNK

REACTIONS (2)
  - HAEMATOMA [None]
  - INTRA-ABDOMINAL HAEMATOMA [None]
